FAERS Safety Report 8017182-5 (Version None)
Quarter: 2012Q1

REPORT INFORMATION
  Report Type: 
  Country: None (occurrence: None)
  Receive Date: 20120102
  Receipt Date: 20111219
  Transmission Date: 20120608
  Serious: Yes (Other)
  Sender: FDA-Public Use
  Company Number: FR-ROCHE-1024236

PATIENT
  Sex: Female
  Weight: 45 kg

DRUGS (5)
  1. MOTILIUM (FRANCE) [Concomitant]
     Route: 048
     Dates: start: 20110303, end: 20110520
  2. BI 207127 [Suspect]
     Indication: HEPATITIS C
     Route: 048
     Dates: start: 20110204, end: 20110526
  3. ANAFRANIL [Concomitant]
     Route: 048
     Dates: start: 20030101
  4. BI 201335 (HCV PROTEASE INHIBITOR) [Suspect]
     Indication: HEPATITIS C
     Route: 048
     Dates: start: 20110204, end: 20110526
  5. COPEGUS [Suspect]
     Indication: HEPATITIS C
     Route: 048
     Dates: start: 20110204, end: 20110526

REACTIONS (3)
  - PRURITUS [None]
  - JAUNDICE [None]
  - TOXIC SKIN ERUPTION [None]
